FAERS Safety Report 9664645 (Version 1)
Quarter: 2013Q4

REPORT INFORMATION
  Report Type: Spontaneous
  Country: US (occurrence: US)
  Receive Date: 20131101
  Receipt Date: 20131101
  Transmission Date: 20140711
  Serious: Yes (Hospitalization, Other)
  Sender: FDA-Public Use
  Company Number: US-UCBSA-101854

PATIENT
  Age: 4 Year
  Sex: Male

DRUGS (5)
  1. LEVOCETIRIZINE [Suspect]
     Dosage: UNKNOWN
  2. AZITHROMYCIN [Concomitant]
     Dosage: UNKNOWN
  3. BUDESONIDE [Concomitant]
     Dosage: UNKNOWN
  4. ALBUTEROL [Concomitant]
     Dosage: UNKNOWN
  5. ORAJEL [Concomitant]

REACTIONS (1)
  - Oxygen saturation decreased [Recovered/Resolved]
